FAERS Safety Report 9631232 (Version 1)
Quarter: 2013Q4

REPORT INFORMATION
  Report Type: Spontaneous
  Country: US (occurrence: US)
  Receive Date: 20131018
  Receipt Date: 20131018
  Transmission Date: 20140711
  Serious: Yes (Other)
  Sender: FDA-Public Use
  Company Number: US-BAYER-2013-124278

PATIENT
  Age: 29 Year
  Sex: Female
  Weight: 66.21 kg

DRUGS (5)
  1. YAZ [Suspect]
  2. YASMIN [Suspect]
  3. OCELLA [Suspect]
  4. CARBAMAZEPINE [Concomitant]
     Indication: CONVULSION
     Dosage: 100 MG, UNK
  5. HYDROCODONE W/ACETAMINOPHEN [Concomitant]
     Dosage: 5/500 MG

REACTIONS (2)
  - Deep vein thrombosis [None]
  - Deep vein thrombosis [None]
